FAERS Safety Report 6835333-2 (Version None)
Quarter: 2010Q3

REPORT INFORMATION
  Report Type: 
  Country: None (occurrence: None)
  Receive Date: 20100707
  Receipt Date: 20100624
  Transmission Date: 20110219
  Serious: Yes (Death, Hospitalization)
  Sender: FDA-Public Use
  Company Number: WAES 1004USA01878

PATIENT
  Age: 70 Year
  Sex: Male
  Weight: 90.7194 kg

DRUGS (1)
  1. CAP VORINOSTAT [Suspect]
     Indication: ACUTE MYELOID LEUKAEMIA
     Dosage: 400 MG/ DAILY/ PO
     Route: 048
     Dates: start: 20100308, end: 20100321

REACTIONS (30)
  - AORTIC ARTERIOSCLEROSIS [None]
  - BLOOD POTASSIUM INCREASED [None]
  - BLOOD SODIUM DECREASED [None]
  - BLOOD UREA INCREASED [None]
  - BRADYCARDIA [None]
  - CARDIO-RESPIRATORY ARREST [None]
  - CHILLS [None]
  - CONJUNCTIVITIS [None]
  - CORONARY ARTERY STENOSIS [None]
  - DEPRESSED LEVEL OF CONSCIOUSNESS [None]
  - DYSPNOEA [None]
  - EFFUSION [None]
  - FACIAL PAIN [None]
  - FATIGUE [None]
  - FEBRILE NEUTROPENIA [None]
  - GRANULOMA [None]
  - HAEMATOCRIT DECREASED [None]
  - HAEMOGLOBIN DECREASED [None]
  - HISTOPLASMOSIS [None]
  - HYPERHIDROSIS [None]
  - HYPOTENSION [None]
  - ISCHAEMIC CARDIOMYOPATHY [None]
  - MYOCARDIAL INFARCTION [None]
  - MYOCARDIAL ISCHAEMIA [None]
  - PAROTID GLAND ENLARGEMENT [None]
  - SALIVARY GLAND PAIN [None]
  - SEPSIS [None]
  - SERRATIA INFECTION [None]
  - SPLENIC HAEMORRHAGE [None]
  - STREPTOCOCCAL INFECTION [None]
